FAERS Safety Report 4556827-9 (Version None)
Quarter: 2005Q1

REPORT INFORMATION
  Report Type: 
  Country: None (occurrence: None)
  Receive Date: 20050120
  Receipt Date: 20050111
  Transmission Date: 20050727
  Serious: Yes (Hospitalization)
  Sender: FDA-Public Use
  Company Number: US-JNJFOC-20040904530

PATIENT
  Sex: Female
  Weight: 101.61 kg

DRUGS (10)
  1. DURAGESIC [Suspect]
     Route: 062
     Dates: start: 20040913
  2. ACTOS [Concomitant]
     Indication: DIABETES MELLITUS
     Route: 049
  3. HYDROCHLOROTHIAZIDE [Concomitant]
     Route: 049
  4. LASIX [Concomitant]
     Route: 049
  5. LOPRESSOR [Concomitant]
     Indication: ARRHYTHMIA
  6. FLEXERIL [Concomitant]
     Route: 049
  7. AMITRIPTYLINE [Concomitant]
     Route: 049
  8. ATIVAN [Concomitant]
     Dosage: THREE DAILY.
     Route: 049
  9. GLUCOPHAGE [Concomitant]
     Indication: DIABETES MELLITUS
     Route: 049
  10. DOXEPIN HCL [Concomitant]
     Route: 049

REACTIONS (5)
  - ASTHENIA [None]
  - DIABETES MELLITUS [None]
  - HYPERTENSION [None]
  - PAIN IN EXTREMITY [None]
  - PNEUMONIA [None]
